FAERS Safety Report 12539844 (Version 1)
Quarter: 2016Q3

REPORT INFORMATION
  Report Type: Report from Study
  Country: US (occurrence: US)
  Receive Date: 20160708
  Receipt Date: 20160708
  Transmission Date: 20161109
  Serious: Yes (Hospitalization)
  Sender: FDA-Public Use
  Company Number: US-BIOGEN-2016BI00260663

PATIENT
  Age: 39 Year
  Sex: Female

DRUGS (1)
  1. TECFIDERA [Suspect]
     Active Substance: DIMETHYL FUMARATE
     Indication: MULTIPLE SCLEROSIS
     Route: 048
     Dates: start: 201403

REACTIONS (8)
  - Visual impairment [Recovered/Resolved]
  - Musculoskeletal stiffness [Recovered/Resolved]
  - Hemianaesthesia [Recovered/Resolved]
  - Speech disorder [Recovered/Resolved]
  - Flushing [Recovered/Resolved]
  - Drug dose omission [Unknown]
  - Memory impairment [Unknown]
  - Stress [Recovered/Resolved]

NARRATIVE: CASE EVENT DATE: 201604
